FAERS Safety Report 15130653 (Version 1)
Quarter: 2018Q3

REPORT INFORMATION
  Report Type: Spontaneous
  Country: US (occurrence: US)
  Receive Date: 20180711
  Receipt Date: 20180711
  Transmission Date: 20181010
  Serious: No
  Sender: FDA-Public Use
  Company Number: US-ENDO PHARMACEUTICALS INC-2018-014359

PATIENT
  Sex: Male
  Weight: 77.1 kg

DRUGS (5)
  1. METOPROLOL. [Concomitant]
     Active Substance: METOPROLOL
     Indication: HYPERTENSION
  2. EDEX [Suspect]
     Active Substance: ALPROSTADIL
     Dosage: 40 MCG, UNKNOWN
  3. EDEX [Suspect]
     Active Substance: ALPROSTADIL
     Indication: ERECTILE DYSFUNCTION
     Dosage: 10 MCG, UNKNOWN
     Dates: start: 2013
  4. LISINOPRIL TABLETS 20MG [Concomitant]
     Active Substance: LISINOPRIL
     Indication: HYPERTENSION
  5. EDEX [Suspect]
     Active Substance: ALPROSTADIL
     Dosage: 20 MCG, UNKNOWN
     Route: 065

REACTIONS (3)
  - Drug effect decreased [Unknown]
  - Intentional product misuse [Unknown]
  - Product storage error [Unknown]
